FAERS Safety Report 16445308 (Version 1)
Quarter: 2019Q2

REPORT INFORMATION
  Report Type: Spontaneous
  Country: US (occurrence: US)
  Receive Date: 20190618
  Receipt Date: 20190618
  Transmission Date: 20190711
  Serious: Yes (Death, Hospitalization)
  Sender: FDA-Public Use
  Company Number: US-ROCHE-2338759

PATIENT
  Age: 66 Year
  Sex: Male
  Weight: 65.83 kg

DRUGS (5)
  1. TYLENOL [Concomitant]
     Active Substance: ACETAMINOPHEN
     Route: 065
  2. NORCO [Concomitant]
     Active Substance: ACETAMINOPHEN\HYDROCODONE BITARTRATE
     Indication: PAIN
     Dosage: TWICE A DAY ;ONGOING: NO
     Route: 048
  3. ALECENSA [Suspect]
     Active Substance: ALECTINIB HYDROCHLORIDE
     Indication: NON-HODGKIN^S LYMPHOMA
     Dosage: 600 MG TWICE A DAY ;ONGOING: NO
     Route: 048
     Dates: start: 20190430, end: 20190604
  4. HYDROCODONE [Concomitant]
     Active Substance: HYDROCODONE
     Indication: NON-SMALL CELL LUNG CANCER
     Route: 065
  5. ALECENSA [Suspect]
     Active Substance: ALECTINIB HYDROCHLORIDE
     Indication: NON-SMALL CELL LUNG CANCER

REACTIONS (3)
  - Pulmonary artery aneurysm [Fatal]
  - Haemoptysis [Not Recovered/Not Resolved]
  - Nausea [Unknown]

NARRATIVE: CASE EVENT DATE: 20190604
